FAERS Safety Report 19228968 (Version 1)
Quarter: 2021Q2

REPORT INFORMATION
  Report Type: Other
  Country: CA (occurrence: CA)
  Receive Date: 20210506
  Receipt Date: 20210506
  Transmission Date: 20210717
  Serious: Yes (Other)
  Sender: FDA-Public Use
  Company Number: CA-KALEO, INC.-2021KL000057

PATIENT
  Age: 3 Year
  Sex: Male

DRUGS (1)
  1. ALLERJECT [Suspect]
     Active Substance: EPINEPHRINE
     Route: 030

REACTIONS (3)
  - Wound [Unknown]
  - Arthritis bacterial [Recovering/Resolving]
  - Accidental exposure to product by child [Recovered/Resolved]
